FAERS Safety Report 7416844-8 (Version None)
Quarter: 2011Q2

REPORT INFORMATION
  Report Type: 
  Country: None (occurrence: None)
  Receive Date: 20110407
  Receipt Date: 20110329
  Transmission Date: 20111010
  Serious: Yes (Hospitalization)
  Sender: FDA-Public Use
  Company Number: 877218

PATIENT
  Age: 32 Year
  Sex: Female
  Weight: 57.5 kg

DRUGS (18)
  1. AMIKACIN [Suspect]
     Indication: MYCOBACTERIUM ABSCESSUS INFECTION
     Dosage: 450 MG MILLIGRAM(S), 2 DAY, INTRAVENOUS
     Route: 042
     Dates: start: 20110207, end: 20110227
  2. TIGECYCLINE [Suspect]
     Indication: MYCOBACTERIUM ABSCESSUS INFECTION
     Dosage: 50 MG MILLIGRAM(S), 2 DAY, INTRAVENOUS
     Route: 042
     Dates: start: 20110208, end: 20110227
  3. OMEPRAZOLE [Concomitant]
  4. VITAMIN K TAB [Concomitant]
  5. CEFOXITIN [Suspect]
     Indication: MYCOBACTERIUM ABSCESSUS INFECTION
     Dosage: 2.4 MG MILLIGRAM(S), 2 DAY, INTRAVENOUS
     Route: 042
     Dates: start: 20110207, end: 20110227
  6. CLARITHROMYCIN [Concomitant]
  7. (COLOMYCIN /00013203/) [Concomitant]
  8. TERBUTALINE [Concomitant]
  9. (ONDANSETRON) [Concomitant]
  10. IMIPENEM AND CILASTATIN [Suspect]
     Indication: MYCOBACTERIUM ABSCESSUS INFECTION
     Dosage: 500 MG MILLIGRAM(S), 4 DAY, INTRAVENOUS
     Route: 042
     Dates: start: 20110208, end: 20110227
  11. MOXIFLOXACIN [Concomitant]
  12. (SERETIDE) [Concomitant]
  13. (FLUCLOXACILLIN) [Concomitant]
  14. (PARACETAMOL) [Concomitant]
  15. (VITAMINS NOS) [Concomitant]
  16. IBUPROFEN [Concomitant]
  17. RHINOCORT [Concomitant]
  18. SPIRIVA [Concomitant]

REACTIONS (6)
  - URTICARIA [None]
  - PALLOR [None]
  - ERYTHEMA [None]
  - SWOLLEN TONGUE [None]
  - LIP SWELLING [None]
  - SWELLING FACE [None]
